FAERS Safety Report 16160446 (Version 3)
Quarter: 2020Q3

REPORT INFORMATION
  Report Type: Spontaneous
  Country: US (occurrence: US)
  Receive Date: 20190405
  Receipt Date: 20200701
  Transmission Date: 20201102
  Serious: Yes (Other)
  Sender: FDA-Public Use
  Company Number: US-SUN PHARMACEUTICAL INDUSTRIES LTD-2019R1-204024

PATIENT
  Age: 7 Decade
  Sex: Female

DRUGS (1)
  1. XELPROS [Suspect]
     Active Substance: LATANOPROST
     Indication: PRODUCT USED FOR UNKNOWN INDICATION
     Dosage: UNK (1 DROP EACH EYE EVERY NIGHT)
     Route: 065
     Dates: start: 20190312, end: 20190319

REACTIONS (4)
  - Glossodynia [Unknown]
  - Anaphylactic reaction [Unknown]
  - Glaucoma [Unknown]
  - Gingival bleeding [Unknown]
